FAERS Safety Report 26121409 (Version 1)
Quarter: 2025Q4

REPORT INFORMATION
  Report Type: Spontaneous
  Country: US (occurrence: None)
  Receive Date: 20251203
  Receipt Date: 20251203
  Transmission Date: 20260118
  Serious: No
  Sender: FDA-CTU
  Company Number: None

PATIENT
  Age: 63 Year
  Sex: Male
  Weight: 94.5 kg

DRUGS (5)
  1. DUPIXENT [Suspect]
     Active Substance: DUPILUMAB
     Indication: Dermatitis atopic
     Dosage: OTHER FREQUENCY : EVERY 14 DAYS;?
     Route: 058
     Dates: start: 20250506
  2. Hydrochlorthiazine 25mg [Concomitant]
     Dates: start: 20250415
  3. LOSARTAN [Concomitant]
     Active Substance: LOSARTAN
     Dates: start: 20250415
  4. PANTOPRAZOLE SODIUM [Concomitant]
     Active Substance: PANTOPRAZOLE SODIUM
     Dates: start: 20250415
  5. Famotidine 40 [Concomitant]
     Dosage: OTHER STRENGTH : 40;?
     Dates: start: 20250415

REACTIONS (4)
  - Cataract [None]
  - Erythema [None]
  - Arthralgia [None]
  - Dyspnoea [None]

NARRATIVE: CASE EVENT DATE: 20251202
